FAERS Safety Report 12902700 (Version 2)
Quarter: 2016Q4

REPORT INFORMATION
  Report Type: Spontaneous
  Country: JP (occurrence: JP)
  Receive Date: 20161102
  Receipt Date: 20161116
  Transmission Date: 20170207
  Serious: Yes (Other)
  Sender: FDA-Public Use
  Company Number: JP-GLAXOSMITHKLINE-JP2016JPN149063

PATIENT
  Age: 46 Year
  Sex: Male

DRUGS (4)
  1. SANSONINTO [Concomitant]
     Dosage: UNK
  2. LAMICTAL [Suspect]
     Active Substance: LAMOTRIGINE
     Indication: BIPOLAR DISORDER
     Dosage: 1400 MG, SINGLE
     Route: 048
     Dates: start: 20161010
  3. ABILIFY [Concomitant]
     Active Substance: ARIPIPRAZOLE
     Dosage: 3 MG, QD
  4. KEISHIKARYUKOTSUBOREITO [Concomitant]
     Active Substance: HERBALS
     Dosage: UNK

REACTIONS (6)
  - Suicide attempt [Recovering/Resolving]
  - Vomiting [Unknown]
  - Gait disturbance [Unknown]
  - Intentional overdose [Unknown]
  - Feeling abnormal [Recovering/Resolving]
  - Diarrhoea [Recovering/Resolving]

NARRATIVE: CASE EVENT DATE: 20161010
